FAERS Safety Report 9732184 (Version 1)
Quarter: 2013Q4

REPORT INFORMATION
  Report Type: Spontaneous
  Country: US (occurrence: None)
  Receive Date: 20131204
  Receipt Date: 20131204
  Transmission Date: 20140711
  Serious: Yes (Death)
  Sender: FDA-Public Use
  Company Number: None

PATIENT
  Age: 48 Year
  Sex: Female
  Weight: 55.7 kg

DRUGS (1)
  1. ESTRADIOL [Suspect]
     Indication: PRODUCT USED FOR UNKNOWN INDICATION
     Dosage: 1 PATCH, EVERY 3 DAYS, TRANSDERMAL
     Route: 062

REACTIONS (6)
  - VIIth nerve paralysis [None]
  - Cerebrovascular accident [None]
  - Carotid artery occlusion [None]
  - Unresponsive to stimuli [None]
  - Convulsion [None]
  - Oedema [None]
